FAERS Safety Report 7673359-X (Version None)
Quarter: 2011Q3

REPORT INFORMATION
  Report Type: 
  Country: None (occurrence: None)
  Receive Date: 20110810
  Receipt Date: 20110729
  Transmission Date: 20111222
  Serious: No
  Sender: FDA-Public Use
  Company Number: US-JNJFOC-20110801852

PATIENT
  Sex: Male
  Weight: 99.79 kg

DRUGS (18)
  1. FENTANYL [Suspect]
     Indication: PAIN IN EXTREMITY
     Dosage: (NDC#0781-7241-55)
     Route: 062
     Dates: start: 20060101
  2. TRAZODONE HCL [Concomitant]
     Indication: SLEEP DISORDER
     Dosage: AS NEEDED
     Route: 048
  3. FLUOXETINE [Concomitant]
     Route: 048
  4. TRIAMTERENE AND HYDROCHLOROTHIAZIDE [Concomitant]
     Indication: DIURETIC THERAPY
     Dosage: 75/ 50 MG DAILY
     Route: 048
  5. SPIRIVA [Concomitant]
     Indication: RESPIRATORY DISORDER
     Route: 055
  6. ASPIRIN [Concomitant]
     Route: 048
  7. FENTANYL-100 [Suspect]
     Indication: BACK PAIN
     Route: 062
     Dates: start: 20060101
  8. OMEPRAZOLE [Concomitant]
     Route: 048
  9. FENTANYL-100 [Suspect]
     Route: 062
     Dates: start: 20060101
  10. FENTANYL-100 [Suspect]
     Indication: PAIN IN EXTREMITY
     Route: 062
     Dates: start: 20060101
  11. FENTANYL-100 [Suspect]
     Route: 062
     Dates: start: 20060101
  12. MINOCYCLINE HCL [Concomitant]
     Indication: STAPHYLOCOCCAL INFECTION
     Dosage: ONE EVERY OTHER DAY
     Route: 048
  13. MULTIPLE VITAMIN [Concomitant]
     Route: 048
  14. GABAPENTIN [Concomitant]
     Indication: NEUROPATHY PERIPHERAL
     Route: 048
  15. PRAVASTATIN [Concomitant]
     Indication: BLOOD CHOLESTEROL
     Dosage: 40 MG 2 DAILY
     Route: 048
  16. FENTANYL [Suspect]
     Indication: BACK PAIN
     Dosage: (NDC#0781-7241-55)
     Route: 062
     Dates: start: 20060101
  17. LEVOTHYROXINE SODIUM [Concomitant]
     Indication: THYROID DISORDER
     Route: 048
  18. METOPROLOL SUCCINATE [Concomitant]
     Indication: BLOOD PRESSURE
     Route: 048

REACTIONS (5)
  - PRODUCT ADHESION ISSUE [None]
  - WRONG TECHNIQUE IN DRUG USAGE PROCESS [None]
  - INCORRECT DRUG ADMINISTRATION DURATION [None]
  - ADVERSE EVENT [None]
  - PAIN [None]
